FAERS Safety Report 23332311 (Version 1)
Quarter: 2023Q4

REPORT INFORMATION
  Report Type: Spontaneous
  Country: IT (occurrence: IT)
  Receive Date: 20231222
  Receipt Date: 20231222
  Transmission Date: 20240110
  Serious: Yes (Hospitalization)
  Sender: FDA-Public Use
  Company Number: IT-MYLANLABS-2023M1136620

PATIENT
  Sex: Male

DRUGS (4)
  1. PREDNISONE [Suspect]
     Active Substance: PREDNISONE
     Indication: Haemangioma congenital
     Dosage: 5 MILLIGRAM, QD
     Route: 065
  2. PREDNISONE [Suspect]
     Active Substance: PREDNISONE
     Indication: Haemangioma-thrombocytopenia syndrome
  3. ASPIRIN [Suspect]
     Active Substance: ASPIRIN
     Indication: Haemangioma congenital
     Dosage: 10 MILLIGRAM, QD
     Route: 065
  4. ASPIRIN [Suspect]
     Active Substance: ASPIRIN
     Indication: Haemangioma-thrombocytopenia syndrome

REACTIONS (2)
  - Drug ineffective [Unknown]
  - Off label use [Unknown]
